FAERS Safety Report 17961852 (Version 1)
Quarter: 2020Q2

REPORT INFORMATION
  Report Type: Spontaneous
  Country: US (occurrence: US)
  Receive Date: 20200629
  Receipt Date: 20200629
  Transmission Date: 20200714
  Serious: Yes (Hospitalization)
  Sender: FDA-Public Use
  Company Number: US-ROCHE-2590948

PATIENT
  Age: 61 Year
  Sex: Female

DRUGS (1)
  1. XELODA [Suspect]
     Active Substance: CAPECITABINE
     Indication: PRODUCT USED FOR UNKNOWN INDICATION
     Route: 048
     Dates: start: 20200416

REACTIONS (4)
  - Dehydration [Unknown]
  - Diarrhoea [Unknown]
  - Syncope [Unknown]
  - Pyrexia [Unknown]

NARRATIVE: CASE EVENT DATE: 20200416
